FAERS Safety Report 9718832 (Version 2)
Quarter: 2013Q4

REPORT INFORMATION
  Report Type: Report from Study
  Country: CN (occurrence: CN)
  Receive Date: 20131127
  Receipt Date: 20131213
  Transmission Date: 20140711
  Serious: Yes (Hospitalization)
  Sender: FDA-Public Use
  Company Number: CN-ASTRAZENECA-2013SE86122

PATIENT
  Age: 20700 Day
  Sex: Male

DRUGS (8)
  1. STUDY PROCEDURE [Suspect]
     Indication: CORONARY ARTERY DISEASE
     Route: 065
  2. AZD6140 [Suspect]
     Indication: CORONARY ARTERY DISEASE
     Route: 048
     Dates: start: 20120613, end: 20131105
  3. BISOPROLOL FUMARATE [Concomitant]
     Indication: BLOOD PRESSURE ABNORMAL
     Route: 048
  4. VASOREL [Concomitant]
     Indication: CORONARY ARTERY DISEASE
     Route: 048
  5. ATORVASTATIN CALCIUM [Concomitant]
     Indication: LIPIDS ABNORMAL
     Route: 048
  6. IRBESARTAN [Concomitant]
     Indication: BLOOD PRESSURE ABNORMAL
     Route: 048
  7. FELODIPINE [Concomitant]
     Indication: BLOOD PRESSURE ABNORMAL
     Route: 048
  8. ASA [Concomitant]
     Route: 048

REACTIONS (1)
  - Duodenal ulcer haemorrhage [Recovered/Resolved]
